FAERS Safety Report 13668520 (Version 1)
Quarter: 2017Q2

REPORT INFORMATION
  Report Type: Spontaneous
  Country: US (occurrence: US)
  Receive Date: 20170619
  Receipt Date: 20170619
  Transmission Date: 20170830
  Serious: No
  Sender: FDA-Public Use
  Company Number: None

PATIENT
  Age: 43 Year
  Sex: Female

DRUGS (1)
  1. LUPRON [Suspect]
     Active Substance: LEUPROLIDE ACETATE
     Indication: MALAISE
     Route: 030
     Dates: start: 20170516

REACTIONS (2)
  - Hot flush [None]
  - Insomnia [None]

NARRATIVE: CASE EVENT DATE: 20170601
